FAERS Safety Report 9064798 (Version 1)
Quarter: 2013Q1

REPORT INFORMATION
  Report Type: Spontaneous
  Country: US (occurrence: US)
  Receive Date: 20130213
  Receipt Date: 20130213
  Transmission Date: 20140127
  Serious: Yes (Death, Hospitalization)
  Sender: FDA-Public Use
  Company Number: US-ROCHE-1187542

PATIENT
  Age: 70 None
  Sex: Female

DRUGS (20)
  1. XELODA [Suspect]
     Indication: BREAST CANCER METASTATIC
     Route: 048
     Dates: start: 20090819
  2. TYKERB [Suspect]
     Indication: BREAST CANCER METASTATIC
     Route: 048
     Dates: start: 20090819
  3. FEMARA [Suspect]
     Indication: BREAST CANCER METASTATIC
     Route: 065
     Dates: start: 201108
  4. AROMASIN [Suspect]
     Indication: BREAST CANCER METASTATIC
     Route: 065
     Dates: start: 201205
  5. MILK OF MAGNESIA [Concomitant]
  6. NAMENDA [Concomitant]
  7. TRAMADOL HYDROCHLORIDE [Concomitant]
  8. RIVASTIGMINE HYDROGEN TARTRATE [Concomitant]
  9. LISINOPRIL [Concomitant]
  10. MAGNESIUM HYDROXIDE [Concomitant]
  11. MEMANTINE HYDROCHLORIDE [Concomitant]
  12. OMEPRAZOLE [Concomitant]
  13. METOPROLOL SUCCINATE [Concomitant]
  14. PARACETAMOL [Concomitant]
  15. POTASSIUM CHLORIDE [Concomitant]
  16. CALCIUM CARBONATE [Concomitant]
  17. EXELON [Concomitant]
  18. OMEPRAZOL [Concomitant]
  19. TOPROL XL [Concomitant]
  20. OS-CAL [Concomitant]

REACTIONS (9)
  - Death [Fatal]
  - Hip fracture [Unknown]
  - Clavicle fracture [Unknown]
  - Dysphagia [Unknown]
  - Abasia [Unknown]
  - Disease progression [Unknown]
  - Fall [Unknown]
  - Head injury [Unknown]
  - Impaired healing [Unknown]
